FAERS Safety Report 7487416-4 (Version None)
Quarter: 2011Q2

REPORT INFORMATION
  Report Type: 
  Country: None (occurrence: None)
  Receive Date: 20110518
  Receipt Date: 20110513
  Transmission Date: 20111010
  Serious: Yes (Other)
  Sender: FDA-Public Use
  Company Number: US-SP-2011-02395

PATIENT
  Sex: Female

DRUGS (3)
  1. TUBERCULIN NOS [Suspect]
     Indication: TUBERCULIN TEST
     Route: 058
     Dates: start: 20110418, end: 20110418
  2. ADACEL [Suspect]
     Indication: IMMUNISATION
     Route: 030
     Dates: start: 20110418, end: 20110418
  3. MENACTRA [Suspect]
     Indication: IMMUNISATION
     Route: 030
     Dates: start: 20110418, end: 20110418

REACTIONS (6)
  - EXTENSIVE SWELLING OF VACCINATED LIMB [None]
  - LOSS OF CONSCIOUSNESS [None]
  - DIZZINESS [None]
  - NAUSEA [None]
  - VACCINATION SITE INFLAMMATION [None]
  - VACCINATION SITE REACTION [None]
